FAERS Safety Report 5924283-1 (Version None)
Quarter: 2008Q4

REPORT INFORMATION
  Report Type: 
  Country: None (occurrence: None)
  Receive Date: 20081020
  Receipt Date: 20081013
  Transmission Date: 20090506
  Serious: Yes (Hospitalization)
  Sender: FDA-Public Use
  Company Number: US-ELI_LILLY_AND_COMPANY-US200808006124

PATIENT
  Sex: Male
  Weight: 78.005 kg

DRUGS (12)
  1. BYETTA [Suspect]
     Indication: TYPE 2 DIABETES MELLITUS
     Dosage: 5 UG, 2/D
     Route: 065
     Dates: start: 20080417, end: 20080807
  2. BYETTA [Suspect]
     Dosage: 10 UG, 2/D
     Route: 065
     Dates: start: 20080521, end: 20080807
  3. BYETTA [Suspect]
     Dosage: 10 UG, 2/D
     Route: 065
     Dates: start: 20080801, end: 20080820
  4. ALLOPURINOL [Concomitant]
     Indication: GOUT
     Dosage: 300 MG, UNKNOWN
     Route: 048
     Dates: start: 20030825
  5. TRICOR [Concomitant]
     Indication: HYPERTRIGLYCERIDAEMIA
     Dosage: 45 MG, UNKNOWN
     Route: 065
     Dates: start: 20080225
  6. AMBIEN [Concomitant]
     Indication: INSOMNIA
     Dosage: 10 MG, UNKNOWN
     Route: 048
     Dates: start: 20060315
  7. INSULIN LISPRO [Concomitant]
     Indication: DIABETES MELLITUS INADEQUATE CONTROL
     Dosage: 8 U, 3/D
     Route: 058
     Dates: start: 20080820
  8. LANTUS [Concomitant]
     Indication: DIABETES MELLITUS INADEQUATE CONTROL
     Dosage: 15 U, 3/D
     Route: 058
     Dates: start: 20080820
  9. METFORMIN HYDROCHLORIDE [Concomitant]
     Indication: TYPE 2 DIABETES MELLITUS
     Dosage: 500 MG, 2/D
     Route: 048
     Dates: start: 20080220, end: 20080820
  10. GLIMEPIRIDE [Concomitant]
     Indication: TYPE 2 DIABETES MELLITUS
     Dosage: 4 MG, 2/D
     Route: 048
     Dates: start: 20080311, end: 20080820
  11. DIOVAN [Concomitant]
     Indication: HYPERTENSION
     Dosage: UNK, DAILY (1/D)
     Route: 048
     Dates: start: 20040224
  12. ASPIRIN [Concomitant]
     Indication: PROPHYLAXIS
     Dosage: 81 MG, DAILY (1/D)
     Route: 048
     Dates: start: 20080101

REACTIONS (5)
  - BLOOD GLUCOSE INCREASED [None]
  - CHOLELITHIASIS [None]
  - DIZZINESS [None]
  - GASTROOESOPHAGEAL REFLUX DISEASE [None]
  - PANCREATITIS NECROTISING [None]
